FAERS Safety Report 15490863 (Version 3)
Quarter: 2019Q1

REPORT INFORMATION
  Report Type: Report from Study
  Country: None (occurrence: CL)
  Receive Date: 20181011
  Receipt Date: 20190102
  Transmission Date: 20190417
  Serious: Yes (Hospitalization, Other)
  Sender: FDA-Public Use
  Company Number: CL-ABBVIE-18K-034-2513784-00

PATIENT
  Age: 54 Year
  Sex: Female

DRUGS (2)
  1. LEVOTHYROXIN [Concomitant]
     Active Substance: LEVOTHYROXINE
     Indication: PRODUCT USED FOR UNKNOWN INDICATION
  2. HUMIRA [Suspect]
     Active Substance: ADALIMUMAB
     Indication: PSORIATIC ARTHROPATHY
     Route: 058
     Dates: start: 20171201, end: 20180825

REACTIONS (20)
  - Joint effusion [Unknown]
  - Bacterial infection [Unknown]
  - Osteoarthritis [Unknown]
  - Nasopharyngitis [Unknown]
  - Post procedural sepsis [Recovered/Resolved]
  - Pyrexia [Recovered/Resolved]
  - Renal mass [Recovering/Resolving]
  - Pyrexia [Unknown]
  - Immunodeficiency [Not Recovered/Not Resolved]
  - Mouth injury [Not Recovered/Not Resolved]
  - Pain [Recovered/Resolved]
  - Epistaxis [Not Recovered/Not Resolved]
  - Weight decreased [Not Recovered/Not Resolved]
  - Thyroid hormones decreased [Unknown]
  - Anaemia [Recovering/Resolving]
  - Fall [Unknown]
  - Urinary tract infection [Unknown]
  - Oedematous kidney [Recovering/Resolving]
  - Fungal infection [Unknown]
  - Wound haemorrhage [Not Recovered/Not Resolved]

NARRATIVE: CASE EVENT DATE: 2018
